FAERS Safety Report 21505372 (Version 2)
Quarter: 2025Q2

REPORT INFORMATION
  Report Type: Spontaneous
  Country: US (occurrence: US)
  Receive Date: 20221026
  Receipt Date: 20250614
  Transmission Date: 20250717
  Serious: Yes (Life-Threatening, Hospitalization, Other)
  Sender: AUROBINDO
  Company Number: US-MLMSERVICE-20221010-3846837-1

PATIENT
  Age: 74 Year
  Sex: Male

DRUGS (1)
  1. METFORMIN [Suspect]
     Active Substance: METFORMIN HYDROCHLORIDE
     Indication: Product used for unknown indication
     Route: 065

REACTIONS (9)
  - Distributive shock [Recovered/Resolved]
  - Blood creatinine increased [Recovered/Resolved]
  - Cardiac arrest [Recovered/Resolved]
  - Hyperkalaemia [Recovered/Resolved]
  - Toxicity to various agents [Recovered/Resolved]
  - Lactic acidosis [Recovered/Resolved]
  - Intentional product misuse [Unknown]
  - Prescription drug used without a prescription [Unknown]
  - Overdose [Unknown]
